FAERS Safety Report 5632546-2 (Version None)
Quarter: 2008Q1

REPORT INFORMATION
  Report Type: 
  Country: None (occurrence: None)
  Receive Date: 20080220
  Receipt Date: 20071031
  Transmission Date: 20080703
  Serious: Yes (Other)
  Sender: FDA-Public Use
  Company Number: US-PFIZER INC-2007094181

PATIENT
  Sex: Male
  Weight: 122.5 kg

DRUGS (3)
  1. CHANTIX [Suspect]
     Indication: SMOKING CESSATION THERAPY
  2. OXYCONTIN [Suspect]
     Indication: PAIN
  3. XANAX [Concomitant]

REACTIONS (2)
  - CONVULSION [None]
  - HYPERTENSION [None]
